FAERS Safety Report 8695589 (Version 3)
Quarter: 2012Q4

REPORT INFORMATION
  Report Type: Report from Study
  Country: CA (occurrence: CA)
  Receive Date: 20120731
  Receipt Date: 20120924
  Transmission Date: 20130627
  Serious: Yes (Hospitalization)
  Sender: FDA-Public Use
  Company Number: CA-ABBOTT-12P-028-0960213-00

PATIENT
  Sex: Male
  Weight: 59.02 kg

DRUGS (1)
  1. LUPRON DEPOT 30 MG [Suspect]
     Indication: PROSTATE CANCER
     Dates: start: 2005

REACTIONS (4)
  - Concussion [Unknown]
  - Cerebral haemorrhage [Unknown]
  - Head injury [Unknown]
  - Fall [Unknown]
